FAERS Safety Report 25402589 (Version 2)
Quarter: 2025Q3

REPORT INFORMATION
  Report Type: Report from Study
  Country: EU (occurrence: EU)
  Receive Date: 20250605
  Receipt Date: 20250728
  Transmission Date: 20251021
  Serious: Yes (Life-Threatening, Hospitalization)
  Sender: REGENERON
  Company Number: EU-SA-SAC20231009000202

PATIENT
  Age: 85 Year
  Sex: Female

DRUGS (20)
  1. CEMIPLIMAB [Suspect]
     Active Substance: CEMIPLIMAB
     Indication: Non-small cell lung cancer
     Route: 065
     Dates: start: 20221213, end: 20221213
  2. CEMIPLIMAB [Suspect]
     Active Substance: CEMIPLIMAB
     Route: 065
     Dates: start: 20230109, end: 20230109
  3. CEMIPLIMAB [Suspect]
     Active Substance: CEMIPLIMAB
     Route: 065
     Dates: start: 20230203, end: 20230203
  4. CEMIPLIMAB [Suspect]
     Active Substance: CEMIPLIMAB
     Route: 065
     Dates: start: 20230224, end: 20230224
  5. CEMIPLIMAB [Suspect]
     Active Substance: CEMIPLIMAB
     Route: 065
     Dates: start: 20230317, end: 20230317
  6. CEMIPLIMAB [Suspect]
     Active Substance: CEMIPLIMAB
     Route: 065
     Dates: start: 20230417, end: 20230417
  7. CEMIPLIMAB [Suspect]
     Active Substance: CEMIPLIMAB
     Route: 065
     Dates: start: 20230508, end: 20230508
  8. CEMIPLIMAB [Suspect]
     Active Substance: CEMIPLIMAB
     Route: 065
     Dates: start: 20230531, end: 20230531
  9. CEMIPLIMAB [Suspect]
     Active Substance: CEMIPLIMAB
     Route: 065
     Dates: start: 20230627, end: 20230627
  10. CEMIPLIMAB [Suspect]
     Active Substance: CEMIPLIMAB
     Route: 065
     Dates: start: 20230718, end: 20230727
  11. ASPIRIN [Concomitant]
     Active Substance: ASPIRIN
     Indication: Coronary artery disease
     Dosage: 100 MG, QD
     Route: 048
     Dates: start: 201501
  12. NEBIVOLOL [Concomitant]
     Active Substance: NEBIVOLOL
     Indication: Hypertension
     Route: 048
     Dates: start: 201501
  13. AMLODIPINE [Concomitant]
     Active Substance: AMLODIPINE BESYLATE
     Indication: Hypertension
     Route: 048
     Dates: start: 202301
  14. RAMIPRIL [Concomitant]
     Active Substance: RAMIPRIL
     Indication: Hypertension
     Route: 048
     Dates: start: 201501
  15. PANTOPRAZOLE [Concomitant]
     Active Substance: PANTOPRAZOLE
     Indication: Gastritis prophylaxis
     Route: 048
     Dates: start: 2010
  16. PANCRELIPASE [Concomitant]
     Active Substance: PANCRELIPASE
     Indication: Pancreatitis
     Route: 048
     Dates: start: 2020
  17. MOXIFLOXACIN [Concomitant]
     Active Substance: MOXIFLOXACIN
     Indication: Inflammation
     Route: 048
     Dates: start: 20230823, end: 20230829
  18. NINTEDANIB [Concomitant]
     Active Substance: NINTEDANIB
     Indication: Chemotherapy
     Route: 048
     Dates: start: 20230728, end: 20230907
  19. DOCETAXEL [Concomitant]
     Active Substance: DOCETAXEL
     Indication: Chemotherapy
     Route: 042
     Dates: start: 20230816, end: 20230907
  20. LOPERAMIDE [Concomitant]
     Active Substance: LOPERAMIDE
     Indication: Prophylaxis
     Route: 048
     Dates: start: 20230728, end: 20230907

REACTIONS (1)
  - Colitis [Recovered/Resolved]

NARRATIVE: CASE EVENT DATE: 20230828
